FAERS Safety Report 19051172 (Version 1)
Quarter: 2021Q1

REPORT INFORMATION
  Report Type: Other
  Country: GB (occurrence: GB)
  Receive Date: 20210323
  Receipt Date: 20210323
  Transmission Date: 20210420
  Serious: No
  Sender: FDA-Public Use
  Company Number: GB-LUPIN PHARMACEUTICALS INC.-2021-03599

PATIENT
  Age: 88 Year
  Sex: Female
  Weight: 51 kg

DRUGS (9)
  1. SENNA [SENNA ALEXANDRINA] [Concomitant]
     Active Substance: SENNA LEAF
     Indication: ILL-DEFINED DISORDER
     Dosage: 15 MILLIGRAM
     Route: 065
     Dates: start: 20210202
  2. COLECALCIFEROL [Concomitant]
     Active Substance: CHOLECALCIFEROL
     Indication: ILL-DEFINED DISORDER
     Dosage: 5000 UNIT
     Route: 065
     Dates: start: 20210202
  3. GANFORT [Concomitant]
     Active Substance: BIMATOPROST\TIMOLOL
     Indication: ILL-DEFINED DISORDER
     Dosage: UNK, ONE DROP
     Route: 065
     Dates: start: 20210202
  4. LACTULOSE. [Concomitant]
     Active Substance: LACTULOSE
     Indication: ILL-DEFINED DISORDER
     Dosage: 15 MILLILITER
     Route: 065
     Dates: start: 20210202
  5. LANSOPRAZOLE. [Concomitant]
     Active Substance: LANSOPRAZOLE
     Indication: ILL-DEFINED DISORDER
     Dosage: 15 MILLIGRAM
     Route: 065
     Dates: start: 20210202
  6. NYSTATIN. [Concomitant]
     Active Substance: NYSTATIN
     Indication: ILL-DEFINED DISORDER
     Dosage: 100000 UNIT
     Route: 065
     Dates: start: 20210202
  7. LINAGLIPTIN [Concomitant]
     Active Substance: LINAGLIPTIN
     Indication: ILL-DEFINED DISORDER
     Dosage: 05 MILLIGRAM
     Route: 065
     Dates: start: 20210202
  8. SIMVASTATIN. [Suspect]
     Active Substance: SIMVASTATIN
     Indication: PRODUCT USED FOR UNKNOWN INDICATION
     Dosage: UNK
     Route: 065
     Dates: start: 20210202
  9. CARMELLOSE SODIUM [Concomitant]
     Active Substance: CARBOXYMETHYLCELLULOSE SODIUM
     Indication: ILL-DEFINED DISORDER
     Dosage: UNK, ONE DROP
     Route: 065
     Dates: start: 20210202

REACTIONS (1)
  - Drug hypersensitivity [Unknown]

NARRATIVE: CASE EVENT DATE: 20210309
